FAERS Safety Report 4355423-6 (Version None)
Quarter: 2004Q2

REPORT INFORMATION
  Report Type: 
  Country: None (occurrence: None)
  Receive Date: 20040505
  Receipt Date: 20040422
  Transmission Date: 20050107
  Serious: Yes (Life-Threatening)
  Sender: FDA-Public Use
  Company Number: 2004208100FR

PATIENT
  Age: 56 Year
  Sex: Male

DRUGS (6)
  1. DOXORUBICIN HCL [Suspect]
     Indication: NON-HODGKIN'S LYMPHOMA
     Dosage: 50 MG, CYCLIC, IV
     Route: 042
     Dates: start: 20020207, end: 20020628
  2. ETOPOSIDE [Suspect]
     Indication: NON-HODGKIN'S LYMPHOMA
     Dosage: 200 MG, CYCLIC, IV
     Route: 042
     Dates: start: 20020207, end: 20020628
  3. PREDNISONE TAB [Suspect]
     Indication: NON-HODGKIN'S LYMPHOMA
     Dosage: 60 MG, UNK, ORAL
     Route: 048
     Dates: start: 20020207, end: 20020628
  4. CYCLOPHOSPHAMIDE [Suspect]
     Indication: NON-HODGKIN'S LYMPHOMA
     Dosage: 1200 MG, UNK, IV
     Route: 042
     Dates: start: 20020207
  5. ROFERON-A [Suspect]
     Indication: NON-HODGKIN'S LYMPHOMA
     Dosage: 4.5 MU, THREE TIMES PER WEEK, SUBCUTANEOUS
     Route: 058
     Dates: start: 20020207, end: 20021121
  6. MABTHERA (RITUXIMAB) [Suspect]
     Indication: NON-HODGKIN'S LYMPHOMA
     Dosage: 700 MG, CYCLIC, IV
     Route: 042
     Dates: start: 20020404, end: 20020628

REACTIONS (5)
  - COUGH [None]
  - DYSPHONIA [None]
  - GENERAL PHYSICAL HEALTH DETERIORATION [None]
  - LUNG NEOPLASM MALIGNANT [None]
  - LYMPHANGIOSIS CARCINOMATOSA [None]
